FAERS Safety Report 5192853-7 (Version None)
Quarter: 2006Q4

REPORT INFORMATION
  Report Type: 
  Country: None (occurrence: None)
  Receive Date: 20061228
  Receipt Date: 20060103
  Transmission Date: 20070319
  Serious: No
  Sender: FDA-Public Use
  Company Number: US-GLAXOSMITHKLINE-A0587565A

PATIENT
  Age: 48 Year
  Sex: Female

DRUGS (4)
  1. FLONASE [Suspect]
     Indication: ILL-DEFINED DISORDER
     Dosage: 3SPR PER DAY
     Route: 045
     Dates: start: 20051228, end: 20060101
  2. SUDAFED 12 HOUR [Concomitant]
  3. GUAIFENESIN [Concomitant]
  4. AVIANE-21 [Concomitant]

REACTIONS (7)
  - CHEST DISCOMFORT [None]
  - COUGH [None]
  - FEELING ABNORMAL [None]
  - NASAL DISCOMFORT [None]
  - PARAESTHESIA [None]
  - THROAT IRRITATION [None]
  - WHEEZING [None]
